FAERS Safety Report 9048147 (Version 1)
Quarter: 2013Q1

REPORT INFORMATION
  Report Type: Spontaneous
  Country: US (occurrence: US)
  Receive Date: 20130204
  Receipt Date: 20130204
  Transmission Date: 20140127
  Serious: No
  Sender: FDA-Public Use
  Company Number: US-009507513-1302USA000335

PATIENT
  Age: 37 Year
  Sex: Male

DRUGS (1)
  1. AZASITE [Suspect]
     Dosage: ONE DROP ONCE A DAY IN EACH EYE FOR 3 WEEKS
     Route: 047
     Dates: start: 20130117

REACTIONS (4)
  - Incorrect drug administration duration [Unknown]
  - Incorrect dose administered [Unknown]
  - Product quality issue [Unknown]
  - No adverse event [Unknown]
